FAERS Safety Report 7597974-7 (Version None)
Quarter: 2011Q3

REPORT INFORMATION
  Report Type: 
  Country: None (occurrence: None)
  Receive Date: 20110708
  Receipt Date: 20110629
  Transmission Date: 20111222
  Serious: Yes (Hospitalization)
  Sender: FDA-Public Use
  Company Number: PHHY2011FR58120

PATIENT
  Sex: Male

DRUGS (1)
  1. SOMATROPIN [Suspect]

REACTIONS (2)
  - SYSTEMIC INFLAMMATORY RESPONSE SYNDROME [None]
  - MULTI-VITAMIN DEFICIENCY [None]
